FAERS Safety Report 10867823 (Version 2)
Quarter: 2015Q1

REPORT INFORMATION
  Report Type: Report from Study
  Country: US (occurrence: US)
  Receive Date: 20150225
  Receipt Date: 20150312
  Transmission Date: 20150721
  Serious: Yes (Other)
  Sender: FDA-Public Use
  Company Number: US-ASTELLAS-2015US005318

PATIENT
  Sex: Female
  Weight: 123 kg

DRUGS (1)
  1. TACROLIMUS. [Suspect]
     Active Substance: TACROLIMUS
     Indication: DERMATITIS ATOPIC
     Dosage: UNKNOWN FREQ. (STRENGTH: 0.03%)
     Route: 061
     Dates: start: 20090721

REACTIONS (3)
  - Hyperlipidaemia [Unknown]
  - Obesity [Not Recovered/Not Resolved]
  - Diabetes mellitus inadequate control [Not Recovered/Not Resolved]
